FAERS Safety Report 18326501 (Version 4)
Quarter: 2020Q4

REPORT INFORMATION
  Report Type: Report from Study
  Country: US (occurrence: US)
  Receive Date: 20200930
  Receipt Date: 20201111
  Transmission Date: 20210113
  Serious: Yes (Hospitalization)
  Sender: FDA-Public Use
  Company Number: US-BRISTOL-MYERS SQUIBB COMPANY-BMS-2020-078720

PATIENT
  Age: 52 Year
  Sex: Female
  Weight: 78.8 kg

DRUGS (2)
  1. IPILIMUMAB [Suspect]
     Active Substance: IPILIMUMAB
     Indication: LEIOMYOSARCOMA
     Dosage: 82 MILLIGRAM, Q3WK
     Route: 042
     Dates: start: 20200716, end: 20200917
  2. NIVOLUMAB [Suspect]
     Active Substance: NIVOLUMAB
     Indication: LEIOMYOSARCOMA
     Dosage: 246 MILLIGRAM, Q3WK
     Route: 042
     Dates: start: 20200716, end: 20200917

REACTIONS (1)
  - Troponin increased [Recovered/Resolved]

NARRATIVE: CASE EVENT DATE: 20200922
